FAERS Safety Report 24361596 (Version 1)
Quarter: 2024Q3

REPORT INFORMATION
  Report Type: Spontaneous
  Country: CN (occurrence: CN)
  Receive Date: 20240925
  Receipt Date: 20240925
  Transmission Date: 20241016
  Serious: Yes (Other)
  Sender: JIANGSU HENGRUI MEDICINE
  Company Number: CN-Jiangsu Hengrui Medicine Co., Ltd.-2162018

PATIENT
  Age: 36 Year
  Sex: Female
  Weight: 60 kg

DRUGS (3)
  1. CISATRACURIUM BESYLATE [Suspect]
     Active Substance: CISATRACURIUM BESYLATE
     Indication: Induction of anaesthesia
     Dates: start: 20240824, end: 20240824
  2. PROPOFOL [Suspect]
     Active Substance: PROPOFOL
     Dates: start: 20240824, end: 20240824
  3. SUFENTANIL CITRATE [Suspect]
     Active Substance: SUFENTANIL CITRATE
     Dates: start: 20240824, end: 20240824

REACTIONS (2)
  - Airway peak pressure increased [Recovered/Resolved]
  - Oxygen saturation decreased [Recovered/Resolved]

NARRATIVE: CASE EVENT DATE: 20240824
